FAERS Safety Report 12894665 (Version 2)
Quarter: 2016Q4

REPORT INFORMATION
  Report Type: Report from Study
  Country: US (occurrence: US)
  Receive Date: 20161028
  Receipt Date: 20161124
  Transmission Date: 20170207
  Serious: Yes (Hospitalization)
  Sender: FDA-Public Use
  Company Number: US-MYLANLABS-2016M1046318

PATIENT

DRUGS (2)
  1. CLOZAPINE. [Suspect]
     Active Substance: CLOZAPINE
     Dosage: DOSE REDUCED
     Route: 048
  2. CLOZAPINE. [Suspect]
     Active Substance: CLOZAPINE
     Indication: PRODUCT USED FOR UNKNOWN INDICATION
     Dosage: UNK
     Route: 048

REACTIONS (3)
  - Erectile dysfunction [Unknown]
  - Libido decreased [Unknown]
  - Psychotic disorder [Recovering/Resolving]
